FAERS Safety Report 17565462 (Version 1)
Quarter: 2020Q1

REPORT INFORMATION
  Report Type: Spontaneous
  Country: US (occurrence: US)
  Receive Date: 20200313
  Receipt Date: 20200313
  Transmission Date: 20200409
  Serious: Yes (Life-Threatening, Hospitalization, Disabling)
  Sender: FDA-Public Use
  Company Number: None

PATIENT
  Age: 14 Year
  Sex: Female

DRUGS (6)
  1. CBD OIL [Suspect]
     Active Substance: CANNABIDIOL\HERBALS
  2. JUUL [DEVICE\NICOTINE] [Suspect]
     Active Substance: DEVICE\NICOTINE
  3. LAMICTAL [Concomitant]
     Active Substance: LAMOTRIGINE
  4. TRILEPTAL [Concomitant]
     Active Substance: OXCARBAZEPINE
  5. VIMPAT [Concomitant]
     Active Substance: LACOSAMIDE
  6. ZOMISIMIDE [Concomitant]

REACTIONS (9)
  - Mood swings [None]
  - Intentional self-injury [None]
  - Depression [None]
  - Suicidal behaviour [None]
  - Generalised tonic-clonic seizure [None]
  - Apathy [None]
  - Anxiety [None]
  - Bite [None]
  - Educational problem [None]
